FAERS Safety Report 4504907-6 (Version None)
Quarter: 2004Q4

REPORT INFORMATION
  Report Type: 
  Country: None (occurrence: None)
  Receive Date: 20040928
  Receipt Date: 20040804
  Transmission Date: 20050328
  Serious: No
  Sender: FDA-Public Use
  Company Number: 04P-163-0269187-00

PATIENT
  Age: 66 Year
  Sex: Female
  Weight: 70.3075 kg

DRUGS (5)
  1. HUMIRA [Suspect]
     Indication: RHEUMATOID ARTHRITIS
     Dosage: 40 MG, 1 IN 2 WK, SUBCUTANEOUS
     Route: 058
     Dates: start: 20040611
  2. HYDROXYCHLOROQUINE PHOSPHATE [Concomitant]
  3. IMURAN [Concomitant]
  4. DARVOCET [Concomitant]
  5. AMITRIPTYLINE HYDROCHLORIDE [Concomitant]

REACTIONS (4)
  - FINGER DEFORMITY [None]
  - FOOT DEFORMITY [None]
  - HEADACHE [None]
  - PAIN [None]
